FAERS Safety Report 17544960 (Version 1)
Quarter: 2020Q1

REPORT INFORMATION
  Report Type: Spontaneous
  Country: IT (occurrence: IT)
  Receive Date: 20200316
  Receipt Date: 20200316
  Transmission Date: 20200409
  Serious: Yes (Other)
  Sender: FDA-Public Use
  Company Number: IT-MYLANLABS-2020M1026377

PATIENT
  Sex: Female

DRUGS (1)
  1. PREGABALIN. [Suspect]
     Active Substance: PREGABALIN
     Indication: BACK PAIN
     Dosage: 75 MG, UNKNOWN
     Route: 065

REACTIONS (5)
  - Blindness [Unknown]
  - Dysstasia [Unknown]
  - Dizziness [Unknown]
  - Agitation [Unknown]
  - Tremor [Unknown]
